FAERS Safety Report 9841904 (Version 1)
Quarter: 2013Q4

REPORT INFORMATION
  Report Type: Spontaneous
  Country: US (occurrence: None)
  Receive Date: 20131219
  Receipt Date: 20131219
  Transmission Date: 20140711
  Serious: Yes (Life-Threatening, Hospitalization, Disabling)
  Sender: FDA-Public Use
  Company Number: 163-20785-13050756

PATIENT
  Age: 47 Year
  Sex: Male

DRUGS (9)
  1. THALOMID (THALIDOMIDE) (100 MILLIGRAM, CAPSULES) [Suspect]
     Indication: PLASMA CELL MYELOMA
     Dosage: 100 MG, 28 IN 28 D, PO
     Route: 048
     Dates: start: 20121129, end: 201304
  2. ACYCLOVIR (ACICLOVIR) [Concomitant]
  3. ADVAIR HFA (SERETIDE MITE) [Concomitant]
  4. CARITA (OTHER THERAPEUTIC PRODUCTS) [Concomitant]
  5. DEXAMETHASONE (DEXAMETHASONE) [Concomitant]
  6. HYDROCODONE-ACETAMINOPHEN (VICODIN) [Concomitant]
  7. LISINOPRIL (LISINOPRIL) [Concomitant]
  8. LYRICA (PREGABALIN) [Concomitant]
  9. METOPROLOL TARTRATE (METOPROLOL TARTRATE) [Concomitant]

REACTIONS (1)
  - Plasma cell myeloma [None]
